FAERS Safety Report 6999008-1 (Version None)
Quarter: 2010Q3

REPORT INFORMATION
  Report Type: 
  Country: None (occurrence: None)
  Receive Date: 20100920
  Receipt Date: 20091030
  Transmission Date: 20110219
  Serious: No
  Sender: FDA-Public Use
  Company Number: US-ASTRAZENECA-2009SE23850

PATIENT
  Age: 27 Year
  Sex: Female
  Weight: 90.7 kg

DRUGS (4)
  1. SEROQUEL [Suspect]
     Indication: BIPOLAR II DISORDER
     Dosage: TWO TIMES A DAY
     Route: 048
     Dates: start: 20090601
  2. SEROQUEL [Suspect]
     Dosage: TWO TIMES A DAY, ONE IN AM, AND 3 IN PM
     Route: 048
  3. NEURONTIN [Concomitant]
  4. DEPAKOTE [Concomitant]

REACTIONS (4)
  - APPETITE DISORDER [None]
  - DRUG DEPENDENCE [None]
  - FEELING ABNORMAL [None]
  - WEIGHT INCREASED [None]
